FAERS Safety Report 6492170-9 (Version None)
Quarter: 2009Q4

REPORT INFORMATION
  Report Type: 
  Country: None (occurrence: None)
  Receive Date: 20091214
  Receipt Date: 20091202
  Transmission Date: 20100525
  Serious: Yes (Hospitalization)
  Sender: FDA-Public Use
  Company Number: US-BIOGENIDEC-179527

PATIENT
  Age: 52 Year
  Sex: Female
  Weight: 81 kg

DRUGS (7)
  1. AVONEX [Suspect]
     Indication: MULTIPLE SCLEROSIS
     Route: 030
     Dates: start: 20030901, end: 20030911
  2. AVONEX [Suspect]
     Route: 030
     Dates: start: 20000101, end: 20030801
  3. DITROPAN [Concomitant]
     Indication: URINARY TRACT DISORDER
  4. BACLOFEN [Concomitant]
     Indication: MUSCLE SPASMS
  5. PREDNISONE [Concomitant]
     Indication: PREMEDICATION
     Route: 048
  6. CELEXA [Concomitant]
     Indication: DEPRESSION
     Dosage: DOSE UNIT: UNKNOWN
  7. MULTI-VITAMIN [Concomitant]
     Indication: VITAMIN SUPPLEMENTATION

REACTIONS (4)
  - ANGIOEDEMA [None]
  - CHEST DISCOMFORT [None]
  - COMA [None]
  - INFLUENZA LIKE ILLNESS [None]
